FAERS Safety Report 23384628 (Version 1)
Quarter: 2024Q1

REPORT INFORMATION
  Report Type: Spontaneous
  Country: US (occurrence: US)
  Receive Date: 20240109
  Receipt Date: 20240109
  Transmission Date: 20240410
  Serious: Yes (Hospitalization)
  Sender: FDA-Public Use
  Company Number: US-FMCRTG-FMC-2401-000003

PATIENT
  Age: 65 Year
  Sex: Male

DRUGS (1)
  1. DELFLEX WITH DEXTROSE 2.5% LOW MAGNESIUM LOW CALCIUM [Suspect]
     Active Substance: CALCIUM CHLORIDE\DEXTROSE\MAGNESIUM CHLORIDE\SODIUM CHLORIDE\SODIUM LACTATE
     Indication: End stage renal disease
     Dosage: FILLS = 5; FILL VOLUME = 2000 ML; LAST FILL VOLUME = 1500ML; TOTAL VOLUME = 9500 ML; TOTAL SLEEP TIM
     Route: 033

REACTIONS (3)
  - Azotaemia [Unknown]
  - Hypervolaemia [Unknown]
  - Inadequate peritoneal dialysis [Unknown]

NARRATIVE: CASE EVENT DATE: 20231221
